FAERS Safety Report 5103692-7 (Version None)
Quarter: 2006Q3

REPORT INFORMATION
  Report Type: 
  Country: None (occurrence: None)
  Receive Date: 20060911
  Receipt Date: 20060911
  Transmission Date: 20061208
  Serious: No
  Sender: FDA-Public Use
  Company Number: None

PATIENT
  Age: 79 Year
  Sex: Female
  Weight: 65.7716 kg

DRUGS (1)
  1. LEVAQUIN [Suspect]
     Indication: BLADDER DISORDER
     Dosage: ONE ONCE DAILY PO
     Route: 048
     Dates: start: 20060908, end: 20060908

REACTIONS (1)
  - NO ADVERSE EFFECT [None]
